FAERS Safety Report 5643017-1 (Version None)
Quarter: 2008Q1

REPORT INFORMATION
  Report Type: 
  Country: None (occurrence: None)
  Receive Date: 20080228
  Receipt Date: 20080218
  Transmission Date: 20080703
  Serious: Yes (Other)
  Sender: FDA-Public Use
  Company Number: DE-BAYER-200813603GPV

PATIENT
  Sex: Female

DRUGS (3)
  1. AVELOX [Suspect]
     Indication: COUGH
     Dosage: UNIT DOSE: 400 MG
     Route: 048
     Dates: start: 20071205, end: 20071211
  2. COUGH DROPS NOS [Concomitant]
     Indication: COUGH
     Route: 065
  3. AZOPT [Concomitant]
     Indication: GLAUCOMA
     Route: 065

REACTIONS (8)
  - ARTHRALGIA [None]
  - FINGER DEFORMITY [None]
  - JOINT SWELLING [None]
  - OEDEMA PERIPHERAL [None]
  - ONYCHOCLASIS [None]
  - PAIN IN EXTREMITY [None]
  - SKIN DISCOLOURATION [None]
  - VISION BLURRED [None]
